FAERS Safety Report 14303848 (Version 1)
Quarter: 2017Q4

REPORT INFORMATION
  Report Type: Spontaneous
  Country: US (occurrence: US)
  Receive Date: 20171219
  Receipt Date: 20171219
  Transmission Date: 20180321
  Serious: Yes (Death, Other)
  Sender: FDA-Public Use
  Company Number: US-OTSUKA-J20030842

PATIENT
  Age: 51 Year
  Sex: Male
  Weight: 81.63 kg

DRUGS (11)
  1. OXCARBAZEPINE. [Concomitant]
     Active Substance: OXCARBAZEPINE
     Indication: PRODUCT USED FOR UNKNOWN INDICATION
     Dosage: UNK
     Route: 065
     Dates: start: 20021227, end: 20030117
  2. CLOZAPINE. [Concomitant]
     Active Substance: CLOZAPINE
     Indication: PRODUCT USED FOR UNKNOWN INDICATION
     Dosage: UNK
     Route: 065
     Dates: start: 20030103, end: 20030117
  3. ABILIFY [Suspect]
     Active Substance: ARIPIPRAZOLE
     Indication: DELUSION
     Dosage: UNK
     Route: 048
     Dates: start: 20021227, end: 20021227
  4. LISINOPRIL. [Concomitant]
     Active Substance: LISINOPRIL
     Indication: PRODUCT USED FOR UNKNOWN INDICATION
     Dosage: 5MG ON 30DEC02 - 01JAN03: 10MG ON 02JAN03 - 17JAN03.
     Route: 065
     Dates: start: 20021230, end: 20030117
  5. HALOPERIDOL. [Concomitant]
     Active Substance: HALOPERIDOL
     Indication: PRODUCT USED FOR UNKNOWN INDICATION
     Dosage: RECEIVED ONE(100MG) DOSE ON 02JAN03/SECOND DOSE ON 10JAN03/5MG ON 17JAN03
     Route: 030
     Dates: start: 20030102, end: 20030110
  6. SODIUM VALPROATE [Concomitant]
     Active Substance: VALPROATE SODIUM
     Indication: PRODUCT USED FOR UNKNOWN INDICATION
     Dosage: UNK
     Route: 065
     Dates: start: 20030103, end: 20030117
  7. CLONAZEPAM. [Concomitant]
     Active Substance: CLONAZEPAM
     Indication: PRODUCT USED FOR UNKNOWN INDICATION
     Dosage: 1MG ON 27DEC02 TO 28DEC02 THEN 0.5MG ON 29DEC02 THEN DC
     Route: 065
     Dates: start: 20021227, end: 20021229
  8. HALOPERIDOL DECANOATE. [Concomitant]
     Active Substance: HALOPERIDOL DECANOATE
     Indication: PRODUCT USED FOR UNKNOWN INDICATION
     Dosage: UNK
     Route: 065
     Dates: start: 20030102, end: 20030110
  9. DEPAKOTE [Concomitant]
     Active Substance: DIVALPROEX SODIUM
     Indication: PRODUCT USED FOR UNKNOWN INDICATION
     Dosage: 1500 MG, QD
     Route: 065
     Dates: start: 20030103, end: 20030117
  10. ABILIFY [Suspect]
     Active Substance: ARIPIPRAZOLE
     Indication: MANIA
     Dosage: UNK
     Route: 048
     Dates: start: 20021229, end: 20030117
  11. ABILIFY [Suspect]
     Active Substance: ARIPIPRAZOLE
     Dosage: UNK
     Route: 048
     Dates: start: 20021228, end: 20021228

REACTIONS (7)
  - Confusional state [Unknown]
  - Psychotic disorder [Unknown]
  - Sudden death [Fatal]
  - Restlessness [Unknown]
  - Abnormal behaviour [Unknown]
  - Blood pressure increased [Unknown]
  - Affect lability [Unknown]

NARRATIVE: CASE EVENT DATE: 20021227
